FAERS Safety Report 10150572 (Version 2)
Quarter: 2014Q2

REPORT INFORMATION
  Report Type: Report from Study
  Country: CN (occurrence: CN)
  Receive Date: 20140502
  Receipt Date: 20140502
  Transmission Date: 20141212
  Serious: Yes (Hospitalization, Other)
  Sender: FDA-Public Use
  Company Number: CN-BAYER-2014-040585

PATIENT
  Age: 71 Year
  Sex: Male

DRUGS (1)
  1. NEXAVAR [Suspect]
     Indication: HEPATOCELLULAR CARCINOMA
     Dosage: 400 MG, QD
     Route: 048
     Dates: start: 20140310, end: 20140313

REACTIONS (7)
  - Aphagia [None]
  - Nausea [None]
  - Vomiting [None]
  - Haematemesis [Recovered/Resolved]
  - Anaphylactic reaction [Recovered/Resolved]
  - Pruritus allergic [Recovered/Resolved]
  - Jaundice [None]
